FAERS Safety Report 6462487-2 (Version None)
Quarter: 2009Q4

REPORT INFORMATION
  Report Type: 
  Country: None (occurrence: None)
  Receive Date: 20091130
  Receipt Date: 20091026
  Transmission Date: 20100525
  Serious: No
  Sender: FDA-Public Use
  Company Number: US-BAYER-200916132BCC

PATIENT
  Age: 27 Year
  Sex: Male
  Weight: 73 kg

DRUGS (2)
  1. ALEVE [Suspect]
     Indication: MIGRAINE
     Dosage: UNIT DOSE: 220 MG
     Route: 048
     Dates: start: 20081026
  2. PRILOSEC [Concomitant]
     Route: 065

REACTIONS (1)
  - NAUSEA [None]
